FAERS Safety Report 6820564-8 (Version None)
Quarter: 2010Q3

REPORT INFORMATION
  Report Type: 
  Country: None (occurrence: None)
  Receive Date: 20100707
  Receipt Date: 20100621
  Transmission Date: 20110219
  Serious: Yes (Hospitalization)
  Sender: FDA-Public Use
  Company Number: A0833430A

PATIENT
  Sex: Male
  Weight: 111.4 kg

DRUGS (6)
  1. AVANDIA [Suspect]
     Dosage: 4MG TWICE PER DAY
     Route: 048
     Dates: start: 19990101
  2. AVANDAMET [Suspect]
     Route: 048
  3. GLUCOPHAGE [Concomitant]
  4. AMARYL [Concomitant]
  5. METOPROLOL [Concomitant]
  6. ALTACE [Concomitant]

REACTIONS (4)
  - CARDIAC DISORDER [None]
  - CORONARY ARTERY DISEASE [None]
  - MYOCARDIAL ISCHAEMIA [None]
  - THROMBOSIS [None]
